FAERS Safety Report 25499344 (Version 1)
Quarter: 2025Q2

REPORT INFORMATION
  Report Type: Spontaneous
  Country: PR (occurrence: None)
  Receive Date: 20250630
  Receipt Date: 20250630
  Transmission Date: 20250717
  Serious: Yes (Life-Threatening)
  Sender: FDA-CTU
  Company Number: None

PATIENT
  Age: 69 Year
  Sex: Female
  Weight: 87.09 kg

DRUGS (1)
  1. HADLIMA [Suspect]
     Active Substance: ADALIMUMAB-BWWD
     Dates: start: 20250313, end: 20250507

REACTIONS (8)
  - Swelling face [None]
  - Synovitis [None]
  - Headache [None]
  - Alopecia [None]
  - Eye swelling [None]
  - Cerumen impaction [None]
  - Muscle spasms [None]
  - Contusion [None]

NARRATIVE: CASE EVENT DATE: 20250507
